FAERS Safety Report 10948671 (Version 1)
Quarter: 2015Q1

REPORT INFORMATION
  Report Type: Spontaneous
  Country: US (occurrence: None)
  Receive Date: 20150323
  Receipt Date: 20150323
  Transmission Date: 20150721
  Serious: Yes (Hospitalization)
  Sender: FDA-Public Use
  Company Number: None

PATIENT
  Age: 76 Year
  Sex: Male
  Weight: 92 kg

DRUGS (8)
  1. TICAGRELOR [Suspect]
     Active Substance: TICAGRELOR
     Indication: CORONARY ARTERY DISEASE
     Route: 048
     Dates: start: 20150201, end: 20150317
  2. SPIRONOLACTONE. [Concomitant]
     Active Substance: SPIRONOLACTONE
  3. TICAGRELOR [Suspect]
     Active Substance: TICAGRELOR
     Indication: ACUTE MYOCARDIAL INFARCTION
     Route: 048
     Dates: start: 20150201, end: 20150317
  4. WARFARIN [Suspect]
     Active Substance: WARFARIN
  5. ATORVASTATIN [Concomitant]
     Active Substance: ATORVASTATIN
  6. DILTIAZEM [Concomitant]
     Active Substance: DILTIAZEM
  7. CLOPIDOGREL [Concomitant]
     Active Substance: CLOPIDOGREL BISULFATE
  8. TICAGRELOR [Concomitant]
     Active Substance: TICAGRELOR

REACTIONS (10)
  - Treatment failure [None]
  - Brain natriuretic peptide increased [None]
  - Fall [None]
  - Mental status changes [None]
  - Cerebrovascular accident [None]
  - Transient ischaemic attack [None]
  - Rash maculo-papular [None]
  - Cardiac failure acute [None]
  - Gait disturbance [None]
  - Rash pruritic [None]

NARRATIVE: CASE EVENT DATE: 20150313
